FAERS Safety Report 23350960 (Version 1)
Quarter: 2023Q4

REPORT INFORMATION
  Report Type: Spontaneous
  Country: US (occurrence: None)
  Receive Date: 20231228
  Receipt Date: 20231228
  Transmission Date: 20240110
  Serious: Yes (Other)
  Sender: FDA-Public Use
  Company Number: None

PATIENT
  Age: 24 Year
  Sex: Female

DRUGS (1)
  1. OCREVUS [Suspect]
     Active Substance: OCRELIZUMAB
     Indication: Multiple sclerosis
     Dosage: OTHER FREQUENCY : Q6M;?
     Route: 042
     Dates: start: 20180223, end: 20230705

REACTIONS (3)
  - Premature delivery [None]
  - Death neonatal [None]
  - Maternal drugs affecting foetus [None]

NARRATIVE: CASE EVENT DATE: 20231026
